FAERS Safety Report 6795850-0 (Version None)
Quarter: 2010Q2

REPORT INFORMATION
  Report Type: 
  Country: None (occurrence: None)
  Receive Date: 20100625
  Receipt Date: 20100621
  Transmission Date: 20101027
  Serious: Yes (Hospitalization)
  Sender: FDA-Public Use
  Company Number: A0866338A

PATIENT
  Sex: Male

DRUGS (14)
  1. ADVAIR DISKUS 100/50 [Suspect]
     Indication: ASTHMA
     Dosage: 1PUFF TWICE PER DAY
     Route: 055
     Dates: start: 20060101
  2. PROAIR HFA [Concomitant]
  3. POTASSIUM CHLORIDE [Concomitant]
  4. TESTOSTERONE INJECTION [Concomitant]
  5. IRON INJECTION [Concomitant]
  6. VITAMIN B-12 [Concomitant]
  7. ALIGN [Concomitant]
     Indication: PROBIOTIC THERAPY
  8. PHENERGAN SUPPOSITORY [Concomitant]
  9. FENTORA [Concomitant]
  10. METHADONE [Concomitant]
  11. MORPHINE SULFATE [Concomitant]
  12. AMITIZA [Concomitant]
  13. STEROID [Concomitant]
  14. SYNTHROID [Concomitant]

REACTIONS (2)
  - PNEUMONIA [None]
  - PNEUMONIA ASPIRATION [None]
